FAERS Safety Report 23551653 (Version 1)
Quarter: 2024Q1

REPORT INFORMATION
  Report Type: Spontaneous
  Country: US (occurrence: US)
  Receive Date: 20240222
  Receipt Date: 20240222
  Transmission Date: 20240409
  Serious: No
  Sender: FDA-Public Use
  Company Number: US-ELI_LILLY_AND_COMPANY-US202402012017

PATIENT
  Age: 35 Year
  Sex: Female

DRUGS (41)
  1. MOUNJARO [Suspect]
     Active Substance: TIRZEPATIDE
     Indication: Type 2 diabetes mellitus
     Dosage: 2.5 MG, UNKNOWN
     Route: 058
     Dates: start: 20231006
  2. MOUNJARO [Suspect]
     Active Substance: TIRZEPATIDE
     Indication: Type 2 diabetes mellitus
     Dosage: 2.5 MG, UNKNOWN
     Route: 058
     Dates: start: 20231006
  3. MOUNJARO [Suspect]
     Active Substance: TIRZEPATIDE
     Indication: Type 2 diabetes mellitus
     Dosage: 2.5 MG, UNKNOWN
     Route: 058
     Dates: start: 20231006
  4. MOUNJARO [Suspect]
     Active Substance: TIRZEPATIDE
     Indication: Type 2 diabetes mellitus
     Dosage: 2.5 MG, UNKNOWN
     Route: 058
     Dates: start: 20231006
  5. MOUNJARO [Suspect]
     Active Substance: TIRZEPATIDE
     Indication: Insulin resistant diabetes
  6. MOUNJARO [Suspect]
     Active Substance: TIRZEPATIDE
     Indication: Insulin resistant diabetes
  7. MOUNJARO [Suspect]
     Active Substance: TIRZEPATIDE
     Indication: Insulin resistant diabetes
  8. MOUNJARO [Suspect]
     Active Substance: TIRZEPATIDE
     Indication: Insulin resistant diabetes
  9. MOUNJARO [Suspect]
     Active Substance: TIRZEPATIDE
     Indication: Sleep apnoea syndrome
  10. MOUNJARO [Suspect]
     Active Substance: TIRZEPATIDE
     Indication: Sleep apnoea syndrome
  11. MOUNJARO [Suspect]
     Active Substance: TIRZEPATIDE
     Indication: Sleep apnoea syndrome
  12. MOUNJARO [Suspect]
     Active Substance: TIRZEPATIDE
     Indication: Sleep apnoea syndrome
  13. MOUNJARO [Suspect]
     Active Substance: TIRZEPATIDE
     Indication: Polycystic ovarian syndrome
  14. MOUNJARO [Suspect]
     Active Substance: TIRZEPATIDE
     Indication: Polycystic ovarian syndrome
  15. MOUNJARO [Suspect]
     Active Substance: TIRZEPATIDE
     Indication: Polycystic ovarian syndrome
  16. MOUNJARO [Suspect]
     Active Substance: TIRZEPATIDE
     Indication: Polycystic ovarian syndrome
  17. MOUNJARO [Suspect]
     Active Substance: TIRZEPATIDE
     Indication: Weight control
  18. MOUNJARO [Suspect]
     Active Substance: TIRZEPATIDE
     Indication: Weight control
  19. MOUNJARO [Suspect]
     Active Substance: TIRZEPATIDE
     Indication: Weight control
  20. MOUNJARO [Suspect]
     Active Substance: TIRZEPATIDE
     Indication: Weight control
  21. MOUNJARO [Suspect]
     Active Substance: TIRZEPATIDE
     Indication: Type 2 diabetes mellitus
     Dosage: 5 MG, UNKNOWN
     Route: 058
     Dates: end: 202401
  22. MOUNJARO [Suspect]
     Active Substance: TIRZEPATIDE
     Indication: Type 2 diabetes mellitus
     Dosage: 5 MG, UNKNOWN
     Route: 058
     Dates: end: 202401
  23. MOUNJARO [Suspect]
     Active Substance: TIRZEPATIDE
     Indication: Type 2 diabetes mellitus
     Dosage: 5 MG, UNKNOWN
     Route: 058
     Dates: end: 202401
  24. MOUNJARO [Suspect]
     Active Substance: TIRZEPATIDE
     Indication: Type 2 diabetes mellitus
     Dosage: 5 MG, UNKNOWN
     Route: 058
     Dates: end: 202401
  25. MOUNJARO [Suspect]
     Active Substance: TIRZEPATIDE
     Indication: Insulin resistant diabetes
  26. MOUNJARO [Suspect]
     Active Substance: TIRZEPATIDE
     Indication: Insulin resistant diabetes
  27. MOUNJARO [Suspect]
     Active Substance: TIRZEPATIDE
     Indication: Insulin resistant diabetes
  28. MOUNJARO [Suspect]
     Active Substance: TIRZEPATIDE
     Indication: Insulin resistant diabetes
  29. MOUNJARO [Suspect]
     Active Substance: TIRZEPATIDE
     Indication: Sleep apnoea syndrome
  30. MOUNJARO [Suspect]
     Active Substance: TIRZEPATIDE
     Indication: Sleep apnoea syndrome
  31. MOUNJARO [Suspect]
     Active Substance: TIRZEPATIDE
     Indication: Sleep apnoea syndrome
  32. MOUNJARO [Suspect]
     Active Substance: TIRZEPATIDE
     Indication: Sleep apnoea syndrome
  33. MOUNJARO [Suspect]
     Active Substance: TIRZEPATIDE
     Indication: Polycystic ovarian syndrome
  34. MOUNJARO [Suspect]
     Active Substance: TIRZEPATIDE
     Indication: Polycystic ovarian syndrome
  35. MOUNJARO [Suspect]
     Active Substance: TIRZEPATIDE
     Indication: Polycystic ovarian syndrome
  36. MOUNJARO [Suspect]
     Active Substance: TIRZEPATIDE
     Indication: Polycystic ovarian syndrome
  37. MOUNJARO [Suspect]
     Active Substance: TIRZEPATIDE
     Indication: Weight control
  38. MOUNJARO [Suspect]
     Active Substance: TIRZEPATIDE
     Indication: Weight control
  39. MOUNJARO [Suspect]
     Active Substance: TIRZEPATIDE
     Indication: Weight control
  40. MOUNJARO [Suspect]
     Active Substance: TIRZEPATIDE
     Indication: Weight control
  41. TYLENOL [Concomitant]
     Active Substance: ACETAMINOPHEN
     Indication: Product used for unknown indication

REACTIONS (6)
  - Food allergy [Unknown]
  - Tachycardia [Unknown]
  - Dizziness [Unknown]
  - Injection site swelling [Recovered/Resolved]
  - Injection site erythema [Unknown]
  - Injection site warmth [Unknown]

NARRATIVE: CASE EVENT DATE: 20231006
